FAERS Safety Report 11968354 (Version 1)
Quarter: 2016Q1

REPORT INFORMATION
  Report Type: Report from Study
  Country: US (occurrence: US)
  Receive Date: 20160128
  Receipt Date: 20160128
  Transmission Date: 20160526
  Serious: Yes (Other)
  Sender: FDA-Public Use
  Company Number: US-AMGEN-USASL2016008370

PATIENT
  Age: 40 Year
  Sex: Female

DRUGS (1)
  1. ENBREL [Suspect]
     Active Substance: ETANERCEPT
     Indication: PSORIASIS
     Dosage: 50 MG, 2 TIMES/WK,ON TUESDAYS AND  FRIDAYS
     Route: 065
     Dates: start: 20151215

REACTIONS (3)
  - Injection site reaction [Recovered/Resolved]
  - Coeliac disease [Unknown]
  - Psoriasis [Unknown]

NARRATIVE: CASE EVENT DATE: 201601
